FAERS Safety Report 6206214-2 (Version None)
Quarter: 2009Q2

REPORT INFORMATION
  Report Type: 
  Country: None (occurrence: None)
  Receive Date: 20090526
  Receipt Date: 20090515
  Transmission Date: 20091009
  Serious: Yes (Death, Hospitalization)
  Sender: FDA-Public Use
  Company Number: AE 2009-061

PATIENT
  Age: 55 Year
  Sex: Male

DRUGS (8)
  1. FAZACLO ODT [Suspect]
     Indication: AFFECTIVE DISORDER
     Dosage: 400 MG QHS PO
     Route: 048
     Dates: start: 20070725, end: 20090406
  2. FAZACLO ODT [Suspect]
     Indication: SCHIZOPHRENIA, PARANOID TYPE
     Dosage: 400 MG QHS PO
     Route: 048
     Dates: start: 20070725, end: 20090406
  3. ADVAIR HFA [Concomitant]
  4. SPIRIVA [Concomitant]
  5. ZYPREXA [Concomitant]
  6. NICOTINE [Concomitant]
  7. ALBUTEROL [Concomitant]
  8. SERTRALINE HCL [Concomitant]

REACTIONS (2)
  - LUNG NEOPLASM MALIGNANT [None]
  - THROAT CANCER [None]
